FAERS Safety Report 6348860-1 (Version None)
Quarter: 2009Q3

REPORT INFORMATION
  Report Type: 
  Country: None (occurrence: None)
  Receive Date: 20090911
  Receipt Date: 20090907
  Transmission Date: 20100115
  Serious: Yes (Death, Other)
  Sender: FDA-Public Use
  Company Number: US-TEVA-208705USA

PATIENT
  Age: 59 Year
  Sex: Female

DRUGS (12)
  1. CISPLATIN [Suspect]
     Indication: NON-HODGKIN'S LYMPHOMA
     Dates: start: 20080601
  2. ETOPOSIDE [Suspect]
     Indication: NON-HODGKIN'S LYMPHOMA
     Dates: start: 20080601
  3. FLUDARABINE PHOSPHATE 50 MG/VIAL [Suspect]
     Indication: NON-HODGKIN'S LYMPHOMA
     Dates: start: 20020101
  4. METHYLPREDNISOLONE TABLET 4MG [Suspect]
     Indication: NON-HODGKIN'S LYMPHOMA
     Dates: start: 20080601
  5. MITOXANTRONE HYDROCHLORIDE INJECTION USP,20 MG/10 ML,25 MG/12.5 ML,30 [Suspect]
     Indication: NON-HODGKIN'S LYMPHOMA
     Dates: start: 20020101
  6. VINCRISTINE SULFATE 1 MG/ML; 1MG/1 ML; 2 MG/2 [Suspect]
     Indication: NON-HODGKIN'S LYMPHOMA
     Dates: start: 19990101
  7. RITUXIMAB [Suspect]
     Indication: NON-HODGKIN'S LYMPHOMA
     Dates: start: 19990101
  8. CYCLOPHOSPHAMIDE [Suspect]
     Indication: NON-HODGKIN'S LYMPHOMA
     Dates: start: 19990101
  9. PREDNISONE TAB [Suspect]
     Indication: NON-HODGKIN'S LYMPHOMA
     Dates: start: 19990101
  10. DEXAMETHASONE [Suspect]
     Indication: NON-HODGKIN'S LYMPHOMA
     Dates: start: 20020101
  11. IBRITUMOMAB TIUXETAN [Suspect]
     Indication: NON-HODGKIN'S LYMPHOMA
     Dates: start: 20050101
  12. CYTARABINE [Suspect]
     Indication: NON-HODGKIN'S LYMPHOMA
     Dates: start: 20080601

REACTIONS (1)
  - PROGRESSIVE MULTIFOCAL LEUKOENCEPHALOPATHY [None]
